FAERS Safety Report 11589154 (Version 2)
Quarter: 2015Q4

REPORT INFORMATION
  Report Type: Spontaneous
  Country: US (occurrence: US)
  Receive Date: 20151002
  Receipt Date: 20151119
  Transmission Date: 20160304
  Serious: No
  Sender: FDA-Public Use
  Company Number: US-PFIZER INC-2015329738

PATIENT
  Age: 33 Year
  Sex: Female

DRUGS (1)
  1. ADVIL [Suspect]
     Active Substance: IBUPROFEN
     Indication: DYSMENORRHOEA
     Dosage: 200 MG, 1X/DAY, ONLY TAKEN ONE
     Dates: start: 20150930, end: 20150930

REACTIONS (3)
  - Poor quality drug administered [Recovered/Resolved]
  - Dyspepsia [Not Recovered/Not Resolved]
  - Product odour abnormal [Recovered/Resolved]

NARRATIVE: CASE EVENT DATE: 20150930
